FAERS Safety Report 4907512-2 (Version None)
Quarter: 2006Q1

REPORT INFORMATION
  Report Type: 
  Country: None (occurrence: None)
  Receive Date: 20060208
  Receipt Date: 20060201
  Transmission Date: 20060701
  Serious: Yes (Death, Hospitalization)
  Sender: FDA-Public Use
  Company Number: LTI2005A00022

PATIENT
  Age: 51 Year
  Sex: Female

DRUGS (3)
  1. PIOGLITAZONE HCL [Suspect]
     Indication: DIABETES MELLITUS NON-INSULIN-DEPENDENT
     Dosage: 1 TAB (1 TAB, 1 IN 1 D)
     Route: 048
     Dates: start: 20040812
  2. AMARYL [Concomitant]
  3. GLUCOPHAGE [Concomitant]

REACTIONS (5)
  - CEREBRAL HAEMATOMA [None]
  - HAEMORRHAGIC STROKE [None]
  - HEADACHE [None]
  - MENINGORRHAGIA [None]
  - RUPTURED CEREBRAL ANEURYSM [None]
